FAERS Safety Report 7226679-7 (Version None)
Quarter: 2011Q1

REPORT INFORMATION
  Report Type: 
  Country: None (occurrence: None)
  Receive Date: 20110114
  Receipt Date: 20110106
  Transmission Date: 20110831
  Serious: No
  Sender: FDA-Public Use
  Company Number: US-US-EMD SERONO, INC.-7032516

PATIENT
  Sex: Female
  Weight: 43 kg

DRUGS (2)
  1. ANXIETY MEDICATION [Concomitant]
     Indication: ANXIETY
  2. REBIF [Suspect]
     Indication: MULTIPLE SCLEROSIS
     Route: 058
     Dates: start: 20101128

REACTIONS (5)
  - DEPRESSED MOOD [None]
  - ANXIETY [None]
  - PANIC ATTACK [None]
  - OCULAR HYPERAEMIA [None]
  - INJECTION SITE PAIN [None]
